FAERS Safety Report 17855258 (Version 7)
Quarter: 2020Q4

REPORT INFORMATION
  Report Type: Report from Study
  Country: US (occurrence: US)
  Receive Date: 20200603
  Receipt Date: 20201015
  Transmission Date: 20210113
  Serious: Yes (Hospitalization, Other)
  Sender: FDA-Public Use
  Company Number: NVSC2020US153517

PATIENT
  Age: 72 Year
  Sex: Male
  Weight: 118.4 kg

DRUGS (22)
  1. ELIQUIS [Concomitant]
     Active Substance: APIXABAN
     Indication: PRODUCT USED FOR UNKNOWN INDICATION
     Dosage: 1 DF, BID
     Route: 048
  2. COREG [Concomitant]
     Active Substance: CARVEDILOL
     Indication: PRODUCT USED FOR UNKNOWN INDICATION
     Dosage: 3.125 MG, BID
     Route: 048
  3. ALBUTEROL. [Concomitant]
     Active Substance: ALBUTEROL
     Indication: WHEEZING
     Dosage: UNK UNK, Q4H (INHALE 2 PUFFS INTO THE LUNGS EVERY 6 HOURS AS NEEDED) 108 (90 BASE)/ ACT INHALER
     Route: 055
  4. ASPIRIN. [Concomitant]
     Active Substance: ASPIRIN
     Indication: PRODUCT USED FOR UNKNOWN INDICATION
     Dosage: 81 MG, QD (ECASA ENTERIC COATED TABLET, EVERY MORNING)
     Route: 065
  5. COREG [Concomitant]
     Active Substance: CARVEDILOL
     Dosage: 6.25 MG, BID
     Route: 048
  6. EFFEXOR [Concomitant]
     Active Substance: VENLAFAXINE HYDROCHLORIDE
     Indication: PRODUCT USED FOR UNKNOWN INDICATION
     Dosage: 1 DF, QD (NIGHTLY)
     Route: 048
  7. ERGOCALCIFEROL. [Concomitant]
     Active Substance: ERGOCALCIFEROL
     Indication: PRODUCT USED FOR UNKNOWN INDICATION
     Dosage: 500 MG, QD
     Route: 048
  8. ENTRESTO [Suspect]
     Active Substance: SACUBITRIL\VALSARTAN
     Indication: CARDIAC FAILURE
     Dosage: 1 DF, BID
     Route: 048
     Dates: start: 201906
  9. FLONASE [Concomitant]
     Active Substance: FLUTICASONE PROPIONATE
     Indication: PRODUCT USED FOR UNKNOWN INDICATION
     Dosage: UNK UNK, PRN (ACT NASAL SUSPENSION SPRAY)
     Route: 065
  10. ADVAIR HFA [Concomitant]
     Active Substance: FLUTICASONE PROPIONATE\SALMETEROL XINAFOATE
     Indication: PRODUCT USED FOR UNKNOWN INDICATION
     Route: 065
  11. CHLORTHALIDONE. [Suspect]
     Active Substance: CHLORTHALIDONE
     Indication: PRODUCT USED FOR UNKNOWN INDICATION
     Dosage: 25 MG, QD
     Route: 048
  12. VENTOLIN HFA [Concomitant]
     Active Substance: ALBUTEROL SULFATE
     Indication: WHEEZING
     Dosage: UNK UNK, Q4H (INHALE 2 PUFFS INTO THE LUNGS EVERY 6 HOURS AS NEEDED) 108 (90 BASE)/ ACT INHALER
     Route: 055
  13. HERPES VIRUS VACCINE [Concomitant]
     Active Substance: HERPES SIMPLEX VACCINE
     Indication: PRODUCT USED FOR UNKNOWN INDICATION
     Dosage: UNK (50 MCG/0.5ML SUSR INJECTION. INJECT 0.5ML INTO THE MUSCLE INJECTION GIVE 1ST INJECTION, AT PHAR
     Route: 030
  14. MAG-OX [Concomitant]
     Active Substance: MAGNESIUM OXIDE
     Indication: PRODUCT USED FOR UNKNOWN INDICATION
     Dosage: 400 MG, BID
     Route: 048
  15. ENTRESTO [Suspect]
     Active Substance: SACUBITRIL\VALSARTAN
     Indication: CARDIAC FAILURE CHRONIC
     Dosage: 100 MG, UNKNOWN (49/51 MG)
     Route: 065
     Dates: start: 20200902
  16. METOLAZONE. [Suspect]
     Active Substance: METOLAZONE
     Indication: PRODUCT USED FOR UNKNOWN INDICATION
     Dosage: UNK
     Route: 065
  17. AMIODARONE [Suspect]
     Active Substance: AMIODARONE
     Indication: PRODUCT USED FOR UNKNOWN INDICATION
     Dosage: UNK
     Route: 065
  18. GLUCOPHAGE [Concomitant]
     Active Substance: METFORMIN HYDROCHLORIDE
     Indication: PRODUCT USED FOR UNKNOWN INDICATION
     Dosage: 1 DF, BID (WITH MEALS)
     Route: 048
  19. PROVENTIL HFA [Concomitant]
     Active Substance: ALBUTEROL SULFATE
     Indication: WHEEZING
     Dosage: UNK UNK, Q4H (INHALE 2 PUFFS INTO THE LUNGS EVERY 6 HOURS AS NEEDED) 108 (90 BASE)/ ACT INHALER
     Route: 055
  20. BUMEX [Concomitant]
     Active Substance: BUMETANIDE
     Indication: WEIGHT INCREASED
     Dosage: 1 DF, BID (MAY TAKE AN EXTRA TABLET AS NEEDED FOR WEIGHT GAIN OF 3-5 LBS IN A DAY OR WEEK)
     Route: 048
  21. PROSCAR [Concomitant]
     Active Substance: FINASTERIDE
     Indication: PRODUCT USED FOR UNKNOWN INDICATION
     Dosage: 1 DF, QD
     Route: 048
  22. K-DUR [Concomitant]
     Active Substance: POTASSIUM CHLORIDE
     Indication: PRODUCT USED FOR UNKNOWN INDICATION
     Dosage: 1 DF, BID
     Route: 048

REACTIONS (15)
  - Renal impairment [Unknown]
  - Drug intolerance [Unknown]
  - Brain natriuretic peptide decreased [Unknown]
  - Asthenia [Unknown]
  - Dyspnoea exertional [Unknown]
  - Weight decreased [Unknown]
  - Fatigue [Recovering/Resolving]
  - Hypokinesia [Unknown]
  - Atrial fibrillation [Unknown]
  - Dizziness postural [Recovered/Resolved]
  - Acute left ventricular failure [Unknown]
  - Fluid retention [Unknown]
  - Ejection fraction decreased [Unknown]
  - Arthritis [Unknown]
  - Hypotension [Unknown]

NARRATIVE: CASE EVENT DATE: 201909
